FAERS Safety Report 25100436 (Version 4)
Quarter: 2025Q3

REPORT INFORMATION
  Report Type: Spontaneous
  Country: CA (occurrence: CA)
  Receive Date: 20250320
  Receipt Date: 20250919
  Transmission Date: 20251020
  Serious: Yes (Death, Hospitalization)
  Sender: PFIZER
  Company Number: CA-PFIZER INC-202500059199

PATIENT
  Age: 77 Year
  Sex: Male

DRUGS (2)
  1. ABRILADA [Suspect]
     Active Substance: ADALIMUMAB-AFZB
     Indication: Hidradenitis
     Dosage: 40 MG, WEEKLY, INDUCTION 160MG WEEK 0, 80MG WEEK 2 THEN 40MG STARTING WEEK 4
     Route: 058
     Dates: start: 20240111
  2. ABRILADA [Suspect]
     Active Substance: ADALIMUMAB-AFZB
     Dosage: 40 MG, WEEKLY, INDUCTION 160MG WEEK 0, 80MG WEEK 2 THEN 40MG STARTING WEEK 4
     Route: 058
     Dates: start: 2025

REACTIONS (5)
  - Death [Fatal]
  - Buttock injury [Not Recovered/Not Resolved]
  - Abscess limb [Not Recovered/Not Resolved]
  - Infection [Unknown]
  - Inflammation [Unknown]

NARRATIVE: CASE EVENT DATE: 20250101
